FAERS Safety Report 5265615-X (Version None)
Quarter: 2007Q1

REPORT INFORMATION
  Report Type: 
  Country: None (occurrence: None)
  Receive Date: 20061213
  Receipt Date: 20021030
  Transmission Date: 20070707
  Serious: No
  Sender: FDA-Public Use
  Company Number: 2002UW13086

PATIENT
  Age: 45 Year
  Sex: Female
  Weight: 69.4003 kg

DRUGS (7)
  1. TAMOXIFEN CITRATE [Suspect]
     Indication: BREAST CANCER
     Dosage: 10 MG BID PO
     Route: 048
     Dates: start: 20010101
  2. WELLBUTRIN [Concomitant]
  3. SYNTHROID [Concomitant]
  4. CELEBREX [Concomitant]
  5. PAXIL [Concomitant]
  6. NASACORT [Concomitant]
  7. CLARITIN [Concomitant]

REACTIONS (2)
  - HYPERLIPIDAEMIA [None]
  - HYPERTRIGLYCERIDAEMIA [None]
